FAERS Safety Report 17604231 (Version 3)
Quarter: 2020Q2

REPORT INFORMATION
  Report Type: Spontaneous
  Country: US (occurrence: US)
  Receive Date: 20200331
  Receipt Date: 20200430
  Transmission Date: 20200713
  Serious: Yes (Other)
  Sender: FDA-Public Use
  Company Number: US-PFIZER INC-2020131319

PATIENT
  Age: 74 Year
  Sex: Male

DRUGS (2)
  1. LYRICA [Suspect]
     Active Substance: PREGABALIN
     Indication: PAIN
  2. LYRICA [Suspect]
     Active Substance: PREGABALIN
     Indication: DIABETIC NEUROPATHY
     Dosage: 450 MG, DAILY (1 CAPSULE EVERY MORNING AND 2 CAPSULES EVERY EVENING)
     Route: 048

REACTIONS (4)
  - Product use issue [Unknown]
  - Post procedural complication [Unknown]
  - Septic arthritis staphylococcal [Unknown]
  - Off label use [Unknown]
